FAERS Safety Report 8329664-7 (Version None)
Quarter: 2012Q2

REPORT INFORMATION
  Report Type: 
  Country: None (occurrence: None)
  Receive Date: 20120502
  Receipt Date: 20120425
  Transmission Date: 20120825
  Serious: Yes (Hospitalization)
  Sender: FDA-Public Use
  Company Number: US-GLAXOSMITHKLINE-A0933935A

PATIENT
  Age: 32 Year
  Sex: Male

DRUGS (1)
  1. AVANDIA [Suspect]
     Indication: TYPE 2 DIABETES MELLITUS
     Dosage: 4MG PER DAY
     Route: 048
     Dates: start: 20050721, end: 20050810

REACTIONS (14)
  - DYSPNOEA [None]
  - WEIGHT INCREASED [None]
  - FATIGUE [None]
  - CARDIAC DISORDER [None]
  - VIITH NERVE PARALYSIS [None]
  - MACULAR OEDEMA [None]
  - VISUAL IMPAIRMENT [None]
  - OEDEMA [None]
  - CEREBROVASCULAR ACCIDENT [None]
  - PULMONARY OEDEMA [None]
  - EYELID PTOSIS [None]
  - LUNG DISORDER [None]
  - EYE SWELLING [None]
  - OEDEMA PERIPHERAL [None]
